FAERS Safety Report 17213374 (Version 11)
Quarter: 2024Q4

REPORT INFORMATION
  Report Type: Spontaneous
  Country: DE (occurrence: DE)
  Receive Date: 20191230
  Receipt Date: 20241127
  Transmission Date: 20250115
  Serious: Yes (Death, Life-Threatening, Hospitalization, Other)
  Sender: MYLAN
  Company Number: DE-BRISTOL-MYERS SQUIBB COMPANY-BMS-2019-121939

PATIENT
  Sex: Female
  Weight: 52 kg

DRUGS (37)
  1. DETRUSITOL [Suspect]
     Active Substance: TOLTERODINE TARTRATE
     Indication: Systemic lupus erythematosus
     Dosage: UNK
     Route: 065
  2. ACYCLOVIR [Suspect]
     Active Substance: ACYCLOVIR
     Indication: Systemic lupus erythematosus
     Dosage: 400 MG, 3X/DAY
     Route: 065
  3. ACYCLOVIR [Suspect]
     Active Substance: ACYCLOVIR
     Dosage: 400 MILLIGRAM, QD
     Route: 065
  4. ACYCLOVIR [Suspect]
     Active Substance: ACYCLOVIR
     Dosage: 1200 MILLIGRAM, QD
     Route: 065
  5. PREDNISOLONE [Suspect]
     Active Substance: PREDNISOLONE
     Indication: Systemic lupus erythematosus
     Dosage: 5 MG, 1X/DAY
     Route: 065
     Dates: start: 1988
  6. MOLSIDOMINE [Suspect]
     Active Substance: MOLSIDOMINE
     Indication: Systemic lupus erythematosus
     Dosage: UNK
     Route: 065
  7. VALSARTAN [Suspect]
     Active Substance: VALSARTAN
     Indication: Systemic lupus erythematosus
     Dosage: UNK, 2X/DAY
     Route: 065
  8. AZATHIOPRINE [Suspect]
     Active Substance: AZATHIOPRINE
     Indication: White blood cell count decreased
     Dosage: UNK
     Route: 065
     Dates: start: 1997, end: 2008
  9. AZATHIOPRINE [Suspect]
     Active Substance: AZATHIOPRINE
     Indication: Systemic lupus erythematosus
     Dosage: 50 MILLIGRAM
     Route: 065
     Dates: start: 20100419, end: 201904
  10. AZATHIOPRINE [Suspect]
     Active Substance: AZATHIOPRINE
     Dosage: 50 MILLIGRAM
     Route: 065
     Dates: start: 201906, end: 201907
  11. ELIQUIS [Suspect]
     Active Substance: APIXABAN
     Indication: Systemic lupus erythematosus
     Dosage: 2.5 MG
     Route: 065
  12. BENLYSTA [Suspect]
     Active Substance: BELIMUMAB
     Indication: White blood cell count decreased
     Dosage: 200 MG/KG, WEEKLY
     Route: 058
     Dates: start: 201708, end: 201904
  13. BENLYSTA [Suspect]
     Active Substance: BELIMUMAB
     Indication: Systemic lupus erythematosus
     Dosage: 10 MILLIGRAM/KILOGRAM, QWK
     Route: 058
     Dates: start: 201711, end: 201812
  14. BENLYSTA [Suspect]
     Active Substance: BELIMUMAB
     Dosage: 200 MILLIGRAM/KILOGRAM, QWK
     Route: 058
     Dates: start: 201806, end: 201807
  15. LEVOTHYROXINE SODIUM [Suspect]
     Active Substance: LEVOTHYROXINE SODIUM
     Indication: Systemic lupus erythematosus
     Dosage: UNK
     Route: 065
  16. FLUVASTATIN [Suspect]
     Active Substance: FLUVASTATIN SODIUM
     Indication: Systemic lupus erythematosus
     Dosage: UNK, 1X/DAY
     Route: 065
  17. FLUVASTATIN [Suspect]
     Active Substance: FLUVASTATIN SODIUM
     Dosage: UNK
     Route: 065
  18. FLUVASTATIN [Suspect]
     Active Substance: FLUVASTATIN SODIUM
     Dosage: UNK
     Route: 065
  19. PENTACARINAT [Suspect]
     Active Substance: PENTAMIDINE ISETHIONATE
     Indication: Systemic lupus erythematosus
     Dosage: UNK
     Route: 055
     Dates: start: 201904
  20. MOLSIDOMINE [Suspect]
     Active Substance: MOLSIDOMINE
     Indication: Systemic lupus erythematosus
     Dosage: UNK, 1X/DAY
     Route: 065
  21. MOLSIDOMINE [Suspect]
     Active Substance: MOLSIDOMINE
     Dosage: UNK
     Route: 065
  22. MOLSIDOMINE [Suspect]
     Active Substance: MOLSIDOMINE
     Dosage: UNK
     Route: 065
  23. MORPHINE [Suspect]
     Active Substance: MORPHINE
     Indication: Systemic lupus erythematosus
     Dosage: 20 TO 55XDAILY
     Route: 065
  24. MORPHINE [Suspect]
     Active Substance: MORPHINE
     Dosage: 20 TO 55XDAILY
     Route: 065
  25. MORPHINE [Suspect]
     Active Substance: MORPHINE
     Dosage: 20 TO 55XDAILY
     Route: 065
  26. MCP [Concomitant]
     Active Substance: METOCLOPRAMIDE HYDROCHLORIDE
     Indication: Product used for unknown indication
     Dosage: UNK, 3X/DAY
     Route: 065
  27. NITRENDIPINE [Concomitant]
     Active Substance: NITRENDIPINE
     Indication: Product used for unknown indication
     Dosage: UNK
     Route: 065
  28. EZETIMIBE [Concomitant]
     Active Substance: EZETIMIBE
     Indication: Product used for unknown indication
     Dosage: UNK, 1X/DAY
     Route: 065
  29. ISDN [Concomitant]
     Indication: Product used for unknown indication
     Dosage: UNK, 2X/DAY
     Route: 065
  30. SAB SIMPLEX [DIMETICONE] [Concomitant]
     Indication: Product used for unknown indication
     Dosage: 30GTT TO 3X/D
     Route: 065
  31. CHOLECALCIFEROL [Concomitant]
     Active Substance: CHOLECALCIFEROL
     Indication: Product used for unknown indication
     Dosage: UNK, WEEKLY
     Route: 065
  32. UMECLIDINIUM BROMIDE\VILANTEROL TRIFENATATE [Concomitant]
     Active Substance: UMECLIDINIUM BROMIDE\VILANTEROL TRIFENATATE
     Indication: Product used for unknown indication
     Dosage: UNK
     Route: 055
  33. LEVOTHYROXINE SODIUM [Concomitant]
     Active Substance: LEVOTHYROXINE SODIUM
     Indication: Product used for unknown indication
     Dosage: UNK, 1X/DAY
     Route: 065
  34. MORPHINE [Concomitant]
     Active Substance: MORPHINE
     Indication: Product used for unknown indication
     Dosage: 30, 2X/DAY
     Route: 065
  35. DULOXETINE [Concomitant]
     Active Substance: DULOXETINE
     Indication: Product used for unknown indication
     Dosage: 30, 1X/DAY
     Route: 065
  36. LAXATAN M [Concomitant]
     Indication: Product used for unknown indication
     Dosage: UNK
     Route: 065
  37. HYDROXYCHLOROQUINE [Concomitant]
     Active Substance: HYDROXYCHLOROQUINE
     Indication: Product used for unknown indication
     Dosage: 200 MG, 1X/DAY
     Route: 065

REACTIONS (31)
  - Peritonitis [Fatal]
  - Lymphopenia [Fatal]
  - Sepsis [Fatal]
  - Pneumocystis jirovecii pneumonia [Fatal]
  - Hypothyroidism [Unknown]
  - Leukopenia [Unknown]
  - Osteonecrosis [Unknown]
  - Gastritis haemorrhagic [Unknown]
  - Antiphospholipid syndrome [Unknown]
  - Colitis ulcerative [Unknown]
  - Skin disorder [Unknown]
  - Pleuritic pain [Unknown]
  - Fall [Unknown]
  - Urinary tract infection [Unknown]
  - Hypertension [Unknown]
  - Antinuclear antibody negative [Unknown]
  - Gastrooesophageal reflux disease [Unknown]
  - Coombs positive haemolytic anaemia [Unknown]
  - Complex regional pain syndrome [Unknown]
  - Hyperlipidaemia [Unknown]
  - Depression [Unknown]
  - Erysipelas [Unknown]
  - Pancreatitis acute [Unknown]
  - Anxiety disorder [Unknown]
  - Systemic lupus erythematosus [Unknown]
  - Herpes simplex reactivation [Unknown]
  - Thrombocytopenia [Unknown]
  - Drug hypersensitivity [Unknown]
  - Off label use [Unknown]
  - Product use in unapproved indication [Unknown]
  - Intentional product use issue [Unknown]

NARRATIVE: CASE EVENT DATE: 19900101
